FAERS Safety Report 7599165-2 (Version None)
Quarter: 2011Q3

REPORT INFORMATION
  Report Type: 
  Country: None (occurrence: None)
  Receive Date: 20110711
  Receipt Date: 20110627
  Transmission Date: 20111222
  Serious: Yes (Other)
  Sender: FDA-Public Use
  Company Number: US-BAYER-201039602NA

PATIENT
  Age: 24 Year
  Sex: Female
  Weight: 63.492 kg

DRUGS (2)
  1. YASMIN [Suspect]
     Indication: ACNE
     Dosage: UNK
     Route: 048
     Dates: start: 20020801, end: 20060601
  2. YASMIN [Suspect]
     Dosage: UNK
     Route: 048
     Dates: start: 20070801, end: 20071001

REACTIONS (1)
  - DEEP VEIN THROMBOSIS [None]
